FAERS Safety Report 20826745 (Version 1)
Quarter: 2022Q2

REPORT INFORMATION
  Report Type: Spontaneous
  Country: US (occurrence: None)
  Receive Date: 20220513
  Receipt Date: 20220513
  Transmission Date: 20220721
  Serious: Yes (Other)
  Sender: FDA-Public Use
  Company Number: None

PATIENT
  Age: 63 Year
  Sex: Male
  Weight: 93.15 kg

DRUGS (8)
  1. KIRKLAND SIGNATURE ESOMEPRAZOLE MAGNESIUM [Suspect]
     Active Substance: ESOMEPRAZOLE MAGNESIUM
     Indication: Dyspepsia
     Dosage: OTHER QUANTITY : 1 CAPSULE(S);?
     Route: 048
     Dates: end: 20220512
  2. ALLEGRA [Concomitant]
     Active Substance: FEXOFENADINE HYDROCHLORIDE
  3. LIPITOR [Concomitant]
     Active Substance: ATORVASTATIN CALCIUM
  4. ADVIL [Concomitant]
     Active Substance: IBUPROFEN
  5. VENLAFAXINE [Concomitant]
     Active Substance: VENLAFAXINE HYDROCHLORIDE
  6. TRAZODONE [Concomitant]
     Active Substance: TRAZODONE HYDROCHLORIDE
  7. otc dry eye drops [Concomitant]
  8. otc nasal spray [Concomitant]

REACTIONS (4)
  - Dry skin [None]
  - Rash [None]
  - Pruritus [None]
  - Stress [None]

NARRATIVE: CASE EVENT DATE: 20220502
